FAERS Safety Report 4777474-X (Version None)
Quarter: 2005Q3

REPORT INFORMATION
  Report Type: 
  Country: None (occurrence: None)
  Receive Date: 20050921
  Receipt Date: 20050908
  Transmission Date: 20060218
  Serious: Yes (Life-Threatening)
  Sender: FDA-Public Use
  Company Number: ST-2005-008607

PATIENT
  Age: 79 Year
  Sex: Female

DRUGS (8)
  1. OLMETEC [Suspect]
     Indication: HYPERTENSION
     Dosage: 20 MG QD PO
     Route: 048
     Dates: start: 20050812, end: 20050824
  2. CRAVIT [Suspect]
     Indication: BRONCHITIS ACUTE
     Dosage: 100 MG TID PO
     Route: 048
     Dates: start: 20050822, end: 20050824
  3. PANALDINE [Concomitant]
  4. AMARYL [Concomitant]
  5. BASEN [Concomitant]
  6. NU LOTAN [Concomitant]
  7. GASTER [Concomitant]
  8. NITOROL [Concomitant]

REACTIONS (5)
  - DEPRESSED LEVEL OF CONSCIOUSNESS [None]
  - DYSARTHRIA [None]
  - HEMIPLEGIA [None]
  - HYPOGLYCAEMIA [None]
  - TREMOR [None]
